FAERS Safety Report 13194924 (Version 1)
Quarter: 2017Q1

REPORT INFORMATION
  Report Type: Other
  Country: US (occurrence: US)
  Receive Date: 20170207
  Receipt Date: 20170207
  Transmission Date: 20170428
  Serious: Yes (Life-Threatening)
  Sender: FDA-Public Use
  Company Number: US-CALIFORNIA DEPARTMENT OF PUBLIC HEALTH-1062855

PATIENT
  Age: 2 Month
  Sex: Female
  Weight: 3.7 kg

DRUGS (7)
  1. SODIUM BICARBONATE. [Concomitant]
     Active Substance: SODIUM BICARBONATE
  2. DEXTROSE. [Concomitant]
     Active Substance: DEXTROSE
  3. CEFTRIAXONE. [Concomitant]
     Active Substance: CEFTRIAXONE
  4. BABYBIG [Suspect]
     Active Substance: HUMAN BOTULINUM NEUROTOXIN A/B IMMUNE GLOBULIN
     Indication: BOTULISM
     Route: 042
     Dates: start: 20170123, end: 20170123
  5. SODIUM CHLORIDE. [Concomitant]
     Active Substance: SODIUM CHLORIDE
  6. CEFEPIME [Concomitant]
     Active Substance: CEFEPIME HYDROCHLORIDE
  7. VANCOMYCIN HCL [Concomitant]
     Active Substance: VANCOMYCIN HYDROCHLORIDE

REACTIONS (4)
  - Cyanosis [Recovered/Resolved]
  - Bradycardia [Recovered/Resolved]
  - Oxygen saturation decreased [Recovered/Resolved]
  - Respiratory failure [Recovered/Resolved]

NARRATIVE: CASE EVENT DATE: 20170123
